FAERS Safety Report 21126330 (Version 2)
Quarter: 2022Q3

REPORT INFORMATION
  Report Type: Report from Study
  Country: ES (occurrence: ES)
  Receive Date: 20220725
  Receipt Date: 20220905
  Transmission Date: 20221027
  Serious: Yes (Hospitalization, Other)
  Sender: FDA-Public Use
  Company Number: ES-TAKEDA-2022TUS049377

PATIENT
  Age: 3 Year
  Sex: Male

DRUGS (12)
  1. TEDUGLUTIDE [Suspect]
     Active Substance: TEDUGLUTIDE
     Indication: Short-bowel syndrome
     Dosage: 0.4 MILLIGRAM, QD
     Route: 042
     Dates: start: 20201106, end: 20210405
  2. TEDUGLUTIDE [Suspect]
     Active Substance: TEDUGLUTIDE
     Indication: Short-bowel syndrome
     Dosage: 0.4 MILLIGRAM, QD
     Route: 042
     Dates: start: 20201106, end: 20210405
  3. TEDUGLUTIDE [Suspect]
     Active Substance: TEDUGLUTIDE
     Indication: Short-bowel syndrome
     Dosage: 0.4 MILLIGRAM, QD
     Route: 042
     Dates: start: 20201106, end: 20210405
  4. TEDUGLUTIDE [Suspect]
     Active Substance: TEDUGLUTIDE
     Indication: Short-bowel syndrome
     Dosage: 0.4 MILLIGRAM, QD
     Route: 042
     Dates: start: 20201106, end: 20210405
  5. TEDUGLUTIDE [Suspect]
     Active Substance: TEDUGLUTIDE
     Dosage: 0.4 MILLIGRAM, QD
     Route: 042
     Dates: start: 20210405, end: 20210505
  6. TEDUGLUTIDE [Suspect]
     Active Substance: TEDUGLUTIDE
     Dosage: 0.4 MILLIGRAM, QD
     Route: 042
     Dates: start: 20210405, end: 20210505
  7. TEDUGLUTIDE [Suspect]
     Active Substance: TEDUGLUTIDE
     Dosage: 0.4 MILLIGRAM, QD
     Route: 042
     Dates: start: 20210405, end: 20210505
  8. TEDUGLUTIDE [Suspect]
     Active Substance: TEDUGLUTIDE
     Dosage: 0.4 MILLIGRAM, QD
     Route: 042
     Dates: start: 20210405, end: 20210505
  9. TACROLIMUS [Concomitant]
     Active Substance: TACROLIMUS
     Indication: Post procedural complication
     Dosage: 4 MILLIGRAM, BID
     Route: 048
     Dates: start: 20220120, end: 20220420
  10. TACROLIMUS [Concomitant]
     Active Substance: TACROLIMUS
     Dosage: 4.4 MILLIGRAM, BID
     Route: 048
     Dates: start: 20220420
  11. VITAMIN D3 [Concomitant]
     Active Substance: CHOLECALCIFEROL
     Indication: Vitamin D deficiency
     Dosage: 6 GTT DROPS, QD
     Route: 048
     Dates: start: 20220420
  12. SULFAMETHOXAZOLE\TRIMETHOPRIM [Concomitant]
     Active Substance: SULFAMETHOXAZOLE\TRIMETHOPRIM
     Indication: Post procedural complication
     Dosage: 4 MILLILITER, BID
     Route: 048
     Dates: start: 20220304

REACTIONS (1)
  - Gastroenteritis sapovirus [Recovered/Resolved]

NARRATIVE: CASE EVENT DATE: 20220704
